FAERS Safety Report 16702090 (Version 1)
Quarter: 2019Q3

REPORT INFORMATION
  Report Type: Spontaneous
  Country: US (occurrence: US)
  Receive Date: 20190627
  Receipt Date: 20190627
  Transmission Date: 20191004
  Serious: Yes (Hospitalization)
  Sender: FDA-Public Use
  Company Number: None

PATIENT
  Age: 64 Year
  Sex: Male
  Weight: 91.6 kg

DRUGS (3)
  1. CASODEX [Suspect]
     Active Substance: BICALUTAMIDE
     Dates: end: 20170821
  2. LEUPROLIDE ACETATE. [Suspect]
     Active Substance: LEUPROLIDE ACETATE
     Dates: end: 20170719
  3. MOBIC [Concomitant]
     Active Substance: MELOXICAM

REACTIONS (6)
  - Haematocrit decreased [None]
  - Packed red blood cell transfusion [None]
  - Asthenia [None]
  - Rectal haemorrhage [None]
  - Proctitis [None]
  - Haemoglobin decreased [None]

NARRATIVE: CASE EVENT DATE: 20190618
